FAERS Safety Report 21461211 (Version 1)
Quarter: 2022Q4

REPORT INFORMATION
  Report Type: Report from Study
  Country: US (occurrence: US)
  Receive Date: 20221015
  Receipt Date: 20221015
  Transmission Date: 20230113
  Serious: No
  Sender: FDA-Public Use
  Company Number: US-ABBVIE-4145575

PATIENT
  Age: 41 Year
  Sex: Male

DRUGS (1)
  1. HUMIRA [Suspect]
     Active Substance: ADALIMUMAB
     Indication: Product used for unknown indication
     Route: 058
     Dates: end: 202208

REACTIONS (8)
  - COVID-19 [Recovered/Resolved]
  - Anxiety [Not Recovered/Not Resolved]
  - Injection site swelling [Recovered/Resolved]
  - Accident at work [Not Recovered/Not Resolved]
  - Drug ineffective [Not Recovered/Not Resolved]
  - Panic attack [Unknown]
  - Pain [Not Recovered/Not Resolved]
  - General symptom [Unknown]

NARRATIVE: CASE EVENT DATE: 20220101
